FAERS Safety Report 19476661 (Version 2)
Quarter: 2021Q3

REPORT INFORMATION
  Report Type: Spontaneous
  Country: US (occurrence: US)
  Receive Date: 20210630
  Receipt Date: 20210706
  Transmission Date: 20211014
  Serious: Yes (Disabling, Other)
  Sender: FDA-Public Use
  Company Number: US-REGENERON PHARMACEUTICALS, INC.-2021-63095

PATIENT

DRUGS (3)
  1. EYLEA [Suspect]
     Active Substance: AFLIBERCEPT
     Indication: MACULAR DEGENERATION
     Dosage: 2 MG, UNK EVERY 4 TO 8 WEEKS
     Route: 031
     Dates: start: 201904
  2. EYLEA [Suspect]
     Active Substance: AFLIBERCEPT
     Dosage: 2 MG, UNK, LEFT EYE
     Route: 031
     Dates: start: 20210514
  3. EYLEA [Suspect]
     Active Substance: AFLIBERCEPT
     Dosage: 2 MG, UNK, LEFT EYE
     Route: 031
     Dates: start: 20210615, end: 20210615

REACTIONS (4)
  - Bacterial endophthalmitis [Not Recovered/Not Resolved]
  - Eye infection staphylococcal [Recovering/Resolving]
  - Propionibacterium infection [Recovering/Resolving]
  - Blindness [Not Recovered/Not Resolved]

NARRATIVE: CASE EVENT DATE: 20210517
